FAERS Safety Report 5789727-7 (Version None)
Quarter: 2008Q2

REPORT INFORMATION
  Report Type: 
  Country: None (occurrence: None)
  Receive Date: 20080626
  Receipt Date: 20080212
  Transmission Date: 20081010
  Serious: No
  Sender: FDA-Public Use
  Company Number: A0709063A

PATIENT
  Age: 60 Year
  Sex: Female

DRUGS (3)
  1. ALLI [Suspect]
     Dates: start: 20080201
  2. PAMELOR [Concomitant]
  3. MIGRAINE MEDICATION [Concomitant]

REACTIONS (7)
  - CONSTIPATION [None]
  - FLATULENCE [None]
  - HUNGER [None]
  - NERVOUSNESS [None]
  - RECTAL DISCHARGE [None]
  - THERAPEUTIC RESPONSE UNEXPECTED [None]
  - WEIGHT DECREASED [None]
